FAERS Safety Report 5403773-4 (Version None)
Quarter: 2007Q3

REPORT INFORMATION
  Report Type: 
  Country: None (occurrence: None)
  Receive Date: 20070731
  Receipt Date: 20070731
  Transmission Date: 20080115
  Serious: Yes (Other)
  Sender: FDA-Public Use
  Company Number: None

PATIENT
  Age: 47 Year
  Sex: Male
  Weight: 83.9154 kg

DRUGS (1)
  1. LEVAQUIN [Suspect]
     Indication: URINARY TRACT INFECTION
     Dosage: 5 OF 7 PILLS ORAL
     Route: 048
     Dates: start: 20000101

REACTIONS (3)
  - ARTHRALGIA [None]
  - JOINT SWELLING [None]
  - WEIGHT DECREASED [None]
